FAERS Safety Report 14954069 (Version 1)
Quarter: 2018Q2

REPORT INFORMATION
  Report Type: Spontaneous
  Country: FR (occurrence: FR)
  Receive Date: 20180530
  Receipt Date: 20180530
  Transmission Date: 20180711
  Serious: Yes (Other)
  Sender: FDA-Public Use
  Company Number: FR-BAYER-2018-098733

PATIENT
  Age: 18 Year
  Sex: Male

DRUGS (2)
  1. IZILOX [Suspect]
     Active Substance: MOXIFLOXACIN HYDROCHLORIDE
     Indication: ANTIBIOTIC PROPHYLAXIS
     Dosage: 400 MG, UNK
     Route: 048
  2. PYRAZINAMIDE. [Suspect]
     Active Substance: PYRAZINAMIDE
     Indication: ANTIBIOTIC PROPHYLAXIS
     Dosage: 2000 MG, UNK
     Route: 048

REACTIONS (4)
  - Polyuria [Recovered/Resolved]
  - Diarrhoea [Recovered/Resolved]
  - Hepatic enzyme increased [Recovered/Resolved]
  - Nausea [Recovered/Resolved]

NARRATIVE: CASE EVENT DATE: 20180111
